FAERS Safety Report 15494023 (Version 2)
Quarter: 2018Q4

REPORT INFORMATION
  Report Type: Spontaneous
  Country: US (occurrence: US)
  Receive Date: 20181012
  Receipt Date: 20181219
  Transmission Date: 20190205
  Serious: Yes (Other)
  Sender: FDA-Public Use
  Company Number: US-BAYER-2018-191127

PATIENT
  Age: 59 Year
  Sex: Female

DRUGS (1)
  1. ESTRADIOL. [Suspect]
     Active Substance: ESTRADIOL
     Route: 062

REACTIONS (6)
  - Product adhesion issue [None]
  - Uterine haemorrhage [Recovered/Resolved]
  - Insomnia [Recovered/Resolved]
  - Product dose omission [Not Recovered/Not Resolved]
  - Hot flush [None]
  - Drug ineffective [Unknown]

NARRATIVE: CASE EVENT DATE: 201809
